FAERS Safety Report 8590237-2 (Version None)
Quarter: 2012Q3

REPORT INFORMATION
  Report Type: 
  Country: None (occurrence: None)
  Receive Date: 20120813
  Receipt Date: 20120801
  Transmission Date: 20120928
  Serious: Yes (Life-Threatening, Hospitalization)
  Sender: FDA-Public Use
  Company Number: BW-BRISTOL-MYERS SQUIBB COMPANY-16850505

PATIENT
  Age: 37 Year
  Sex: Male
  Weight: 60 kg

DRUGS (2)
  1. EFAVIRENZ [Suspect]
     Indication: HIV INFECTION
     Route: 048
     Dates: start: 20120308, end: 20120727
  2. TRUVADA [Suspect]
     Indication: HIV INFECTION
     Dosage: CAPS,1DF=300/200 MG,QD.
     Route: 048
     Dates: start: 20120308

REACTIONS (1)
  - LIVER DISORDER [None]
